FAERS Safety Report 21076544 (Version 2)
Quarter: 2022Q3

REPORT INFORMATION
  Report Type: Spontaneous
  Country: PK (occurrence: PK)
  Receive Date: 20220713
  Receipt Date: 20220810
  Transmission Date: 20221027
  Serious: Yes (Congenital Anomaly)
  Sender: FDA-Public Use
  Company Number: PK-NOVOPROD-937703

PATIENT

DRUGS (1)
  1. LEVEMIR [Suspect]
     Active Substance: INSULIN DETEMIR
     Indication: Diabetes mellitus
     Dosage: 42 IU, QD
     Route: 064
     Dates: start: 20210813, end: 20210830

REACTIONS (2)
  - Thalassaemia [Unknown]
  - Foetal exposure during pregnancy [Recovered/Resolved]
